FAERS Safety Report 5083744-0 (Version None)
Quarter: 2006Q3

REPORT INFORMATION
  Report Type: 
  Country: None (occurrence: None)
  Receive Date: 20060814
  Receipt Date: 20060802
  Transmission Date: 20061208
  Serious: Yes (Other)
  Sender: FDA-Public Use
  Company Number: URSO-2006-028

PATIENT
  Age: 81 Year
  Sex: Female

DRUGS (11)
  1. URSODIOL [Suspect]
     Indication: CHOLELITHIASIS
     Dosage: 300 MG, PO
     Route: 048
     Dates: start: 20040412, end: 20051117
  2. ROCALTROL [Concomitant]
  3. MYONABASE (EPERISONE HYDROCHLORIDE) [Concomitant]
  4. CAPTORIL (CAPTOPRIL) [Concomitant]
  5. AZEPTIN (AZELASTINE HYDROCHLORIDE) [Concomitant]
  6. AMLODIPINE BESYLATE [Concomitant]
  7. THEODUR TABLETS (THEOPHYLLINE) [Concomitant]
  8. PREDNISOLONE [Concomitant]
  9. QVAR 40 [Concomitant]
  10. ACTARIT [Concomitant]
  11. AZULFIDINE-EN (SALAZOSULFAPYRIDINE) [Concomitant]

REACTIONS (10)
  - BLOOD ALKALINE PHOSPHATASE INCREASED [None]
  - DIARRHOEA [None]
  - EOSINOPHIL PERCENTAGE INCREASED [None]
  - FACE OEDEMA [None]
  - GAMMA-GLUTAMYLTRANSFERASE INCREASED [None]
  - HYPERSENSITIVITY [None]
  - INTERSTITIAL LUNG DISEASE [None]
  - MUSCULOSKELETAL STIFFNESS [None]
  - ORAL PAIN [None]
  - RHEUMATOID ARTHRITIS [None]
